FAERS Safety Report 22249569 (Version 1)
Quarter: 2023Q2

REPORT INFORMATION
  Report Type: Spontaneous
  Country: CA (occurrence: CA)
  Receive Date: 20230425
  Receipt Date: 20230425
  Transmission Date: 20230722
  Serious: Yes (Other)
  Sender: FDA-Public Use
  Company Number: None

PATIENT
  Age: 37 Year
  Sex: Female
  Weight: 54 kg

DRUGS (13)
  1. CAPECITABINE [Suspect]
     Active Substance: CAPECITABINE
     Indication: Product used for unknown indication
  2. PERJETA [Suspect]
     Active Substance: PERTUZUMAB
     Indication: Breast cancer metastatic
     Dosage: 14 ML VIAL CONCENTRATE SOLUTION
     Route: 042
  3. TRASTUZUMAB [Suspect]
     Active Substance: TRASTUZUMAB
     Indication: Breast cancer metastatic
     Dosage: 1 EVERY 3 WEEKS
     Route: 042
  4. HUMAN IMMUNOGLOBULIN G [Suspect]
     Active Substance: HUMAN IMMUNOGLOBULIN G
     Indication: Product used for unknown indication
     Route: 042
  5. KADCYLA [Suspect]
     Active Substance: ADO-TRASTUZUMAB EMTANSINE
     Indication: Breast cancer metastatic
     Dosage: POWDER FOR SOLUTION
     Route: 042
  6. TRAMADOL [Concomitant]
     Active Substance: TRAMADOL
  7. BENADRYL [Concomitant]
     Active Substance: DIPHENHYDRAMINE HYDROCHLORIDE
  8. MAGNESIUM [Concomitant]
     Active Substance: MAGNESIUM
  9. PACLITAXEL [Concomitant]
     Active Substance: PACLITAXEL
     Dosage: INJECTION
     Route: 042
  10. SOLU-MEDROL [Concomitant]
     Active Substance: METHYLPREDNISOLONE SODIUM SUCCINATE
  11. TAXOL [Concomitant]
     Active Substance: PACLITAXEL
     Route: 042
  12. KADCYLA [Suspect]
     Active Substance: ADO-TRASTUZUMAB EMTANSINE
     Indication: Breast cancer metastatic
     Dosage: POWDER FOR SOLUTION
     Route: 042
  13. PERJETA [Suspect]
     Active Substance: PERTUZUMAB
     Indication: Breast cancer metastatic
     Dosage: 14 ML VIAL CONCENTRATE SOLUTION
     Route: 042

REACTIONS (49)
  - Abdominal pain [Unknown]
  - Asthenia [Unknown]
  - Blister [Unknown]
  - Blood creatine phosphokinase increased [Unknown]
  - Blood iron decreased [Unknown]
  - Blood magnesium decreased [Unknown]
  - Blood pressure decreased [Unknown]
  - Blood pressure diastolic decreased [Unknown]
  - Blood pressure systolic decreased [Unknown]
  - Blood test abnormal [Unknown]
  - Breast disorder [Unknown]
  - Constipation [Unknown]
  - Dry mouth [Unknown]
  - Dry skin [Unknown]
  - Dry throat [Unknown]
  - Dysmenorrhoea [Unknown]
  - Eczema [Unknown]
  - Electric shock sensation [Unknown]
  - Epistaxis [Unknown]
  - Faeces soft [Unknown]
  - Fatigue [Unknown]
  - Gingival pain [Unknown]
  - Hand dermatitis [Unknown]
  - Headache [Unknown]
  - Heart rate decreased [Unknown]
  - Hepatitis [Unknown]
  - Hyperaesthesia [Unknown]
  - Hypotension [Unknown]
  - Malaise [Unknown]
  - Malignant neoplasm progression [Unknown]
  - Muscular weakness [Unknown]
  - Myalgia [Unknown]
  - Nasopharyngitis [Unknown]
  - Nausea [Unknown]
  - Neoplasm progression [Unknown]
  - Pain [Unknown]
  - Palpitations [Unknown]
  - Paraesthesia [Unknown]
  - Pruritus [Unknown]
  - Recurrent cancer [Unknown]
  - Seasonal allergy [Unknown]
  - Skin fissures [Unknown]
  - Sneezing [Unknown]
  - Stress [Unknown]
  - Tumour marker increased [Unknown]
  - Urinary tract infection [Unknown]
  - Vulvovaginal pain [Unknown]
  - Weight decreased [Unknown]
  - Weight increased [Unknown]
